FAERS Safety Report 5066184-X (Version None)
Quarter: 2006Q3

REPORT INFORMATION
  Report Type: 
  Country: None (occurrence: None)
  Receive Date: 20060703
  Receipt Date: 20060328
  Transmission Date: 20061208
  Serious: Yes (Hospitalization, Disabling, Other)
  Sender: FDA-Public Use
  Company Number: WAES 0604USA00412

PATIENT
  Age: 44 Year
  Sex: Female
  Weight: 60.782 kg

DRUGS (2)
  1. HYZAAR [Suspect]
     Indication: MALIGNANT HYPERTENSION
     Dosage: 100-25 MG/DAILY/PO
     Route: 048
     Dates: start: 20040101, end: 20060220
  2. [THERAPY UNSPECIFIED] [Concomitant]

REACTIONS (1)
  - PANCREATITIS [None]
